FAERS Safety Report 7008790-9 (Version None)
Quarter: 2010Q3

REPORT INFORMATION
  Report Type: 
  Country: None (occurrence: None)
  Receive Date: 20100921
  Receipt Date: 20100903
  Transmission Date: 20110219
  Serious: Yes (Other)
  Sender: FDA-Public Use
  Company Number: UK-ACCORD-003094

PATIENT
  Age: 42 Year
  Sex: Male

DRUGS (1)
  1. MITOMYCIN [Suspect]
     Indication: TRABECULECTOMY

REACTIONS (7)
  - INTRAOCULAR PRESSURE INCREASED [None]
  - IRIS ADHESIONS [None]
  - OFF LABEL USE [None]
  - PROCEDURAL SITE REACTION [None]
  - SCLERAL THINNING [None]
  - STAPHYLOMA [None]
  - UVEAL PROLAPSE [None]
